FAERS Safety Report 25043481 (Version 2)
Quarter: 2025Q1

REPORT INFORMATION
  Report Type: Spontaneous
  Country: NL (occurrence: NL)
  Receive Date: 20250306
  Receipt Date: 20250313
  Transmission Date: 20250408
  Serious: No
  Sender: ASTELLAS
  Company Number: NL-ASTELLAS-2025-AER-012583

PATIENT
  Age: 47 Year
  Sex: Female

DRUGS (1)
  1. VEOZAH [Suspect]
     Active Substance: FEZOLINETANT
     Indication: Hot flush
     Dosage: 1X PER DAY 1 TABLET
     Route: 048
     Dates: start: 20240601, end: 20250206

REACTIONS (1)
  - Hepatic enzyme increased [Not Recovered/Not Resolved]

NARRATIVE: CASE EVENT DATE: 20250221
